FAERS Safety Report 18156471 (Version 1)
Quarter: 2020Q3

REPORT INFORMATION
  Report Type: Spontaneous
  Country: IN (occurrence: IN)
  Receive Date: 20200816
  Receipt Date: 20200816
  Transmission Date: 20201103
  Serious: Yes (Hospitalization, Other)
  Sender: FDA-Public Use
  Company Number: None

PATIENT
  Age: 26 Year
  Sex: Male
  Weight: 85 kg

DRUGS (1)
  1. TRAMADOL HYDROCHLORIDE. [Suspect]
     Active Substance: TRAMADOL HYDROCHLORIDE
     Indication: BACK PAIN
     Route: 040

REACTIONS (10)
  - Hyperacusis [None]
  - Tooth fracture [None]
  - Scar [None]
  - Photophobia [None]
  - Seizure [None]
  - Facial bones fracture [None]
  - Lip haemorrhage [None]
  - Lip injury [None]
  - Drug dependence [None]
  - Restlessness [None]
